FAERS Safety Report 10902150 (Version 2)
Quarter: 2015Q1

REPORT INFORMATION
  Report Type: Spontaneous
  Country: IT (occurrence: IT)
  Receive Date: 20150310
  Receipt Date: 20150316
  Transmission Date: 20150721
  Serious: Yes (Hospitalization)
  Sender: FDA-Public Use
  Company Number: IT-PFIZER INC-2015084001

PATIENT
  Age: 3 Year
  Sex: Male
  Weight: 16 kg

DRUGS (4)
  1. TRAMADOL HYDROCHLORIDE. [Concomitant]
     Active Substance: TRAMADOL HYDROCHLORIDE
  2. ZYVOXID [Suspect]
     Active Substance: LINEZOLID
     Indication: INFECTIOUS PLEURAL EFFUSION
     Dosage: 640 MG, DAILY
     Route: 041
     Dates: start: 20150129, end: 20150227
  3. PARACETAMOL [Concomitant]
     Active Substance: ACETAMINOPHEN
  4. MEROPENEM KABI [Suspect]
     Active Substance: MEROPENEM
     Indication: INFECTIOUS PLEURAL EFFUSION
     Dosage: 960 MG, DAILY
     Route: 041
     Dates: start: 20150129, end: 20150227

REACTIONS (1)
  - Gait disturbance [Not Recovered/Not Resolved]

NARRATIVE: CASE EVENT DATE: 20150225
